FAERS Safety Report 25440294 (Version 2)
Quarter: 2025Q3

REPORT INFORMATION
  Report Type: Spontaneous
  Country: US (occurrence: US)
  Receive Date: 20250616
  Receipt Date: 20250716
  Transmission Date: 20251021
  Serious: No
  Sender: PFIZER
  Company Number: US-PFIZER INC-202500103272

PATIENT
  Age: 7 Year
  Sex: Female

DRUGS (3)
  1. GENOTROPIN [Suspect]
     Active Substance: SOMATROPIN
     Indication: Hypopituitarism
     Dosage: 0.6 MG, ALTERNATE DAY (TO MAKE DAILY DOSE: 0.7 MG/DAY 7 DAYS/WEEK )
  2. GENOTROPIN [Suspect]
     Active Substance: SOMATROPIN
     Indication: Growth hormone deficiency
     Dosage: 0.8 MG, ALTERNATE DAY ((TO MAKE DAILY DOSE: 0.7 MG/DAY 7 DAYS/WEEK)
  3. GENOTROPIN [Suspect]
     Active Substance: SOMATROPIN

REACTIONS (2)
  - Injection site bruising [Not Recovered/Not Resolved]
  - Injection site discharge [Not Recovered/Not Resolved]
